FAERS Safety Report 9417128 (Version 1)
Quarter: 2013Q3

REPORT INFORMATION
  Report Type: Spontaneous
  Country: PL (occurrence: None)
  Receive Date: 20130722
  Receipt Date: 20130722
  Transmission Date: 20140515
  Serious: Yes (Hospitalization)
  Sender: FDA-Public Use
  Company Number: IPC201307-000270

PATIENT
  Age: 30 Year
  Sex: Female

DRUGS (2)
  1. METOCLOPRAMIDE HYDROCHLORIDE [Suspect]
     Indication: GASTROENTERITIS
  2. NIFUROXAZIDE [Suspect]
     Indication: GASTROENTERITIS

REACTIONS (3)
  - Angioedema [None]
  - Urticaria [None]
  - Drug hypersensitivity [None]
